FAERS Safety Report 6251661-6 (Version None)
Quarter: 2009Q2

REPORT INFORMATION
  Report Type: 
  Country: None (occurrence: None)
  Receive Date: 20090630
  Receipt Date: 20090618
  Transmission Date: 20091009
  Serious: Yes (Other)
  Sender: FDA-Public Use
  Company Number: US-PFIZER INC-2009232819

PATIENT

DRUGS (1)
  1. TOVIAZ [Suspect]
     Indication: HYPERTONIC BLADDER
     Dosage: 8 MG, UNK

REACTIONS (4)
  - FATIGUE [None]
  - MALAISE [None]
  - NAUSEA [None]
  - NERVOUS SYSTEM DISORDER [None]
